FAERS Safety Report 22089270 (Version 2)
Quarter: 2024Q1

REPORT INFORMATION
  Report Type: Report from Study
  Country: TR (occurrence: TR)
  Receive Date: 20230313
  Receipt Date: 20240223
  Transmission Date: 20240409
  Serious: Yes (Congenital Anomaly, Other)
  Sender: FDA-Public Use
  Company Number: TR-002147023-NVSC2023TR055366

PATIENT

DRUGS (1)
  1. FINGOLIMOD [Suspect]
     Active Substance: FINGOLIMOD
     Indication: Foetal exposure during pregnancy
     Dosage: MATERNAL  EXPOSURE DURING  PREGNANCY: 1 DOSAGE FORM, QD
     Route: 064

REACTIONS (2)
  - Coarctation of the aorta [Unknown]
  - Foetal exposure during pregnancy [Unknown]
